FAERS Safety Report 18022083 (Version 2)
Quarter: 2020Q3

REPORT INFORMATION
  Report Type: Spontaneous
  Country: US (occurrence: US)
  Receive Date: 20200714
  Receipt Date: 20200803
  Transmission Date: 20201103
  Serious: Yes (Death, Other)
  Sender: FDA-Public Use
  Company Number: US-MALLINCKRODT-T202003429

PATIENT

DRUGS (1)
  1. OFIRMEV [Suspect]
     Active Substance: ACETAMINOPHEN
     Indication: PROCEDURAL PAIN
     Dosage: UNK (SIX HOURS FOR 24?48 HOURS, MEASURED IN MILLIGRAM PER DAY)
     Route: 042

REACTIONS (12)
  - Acute kidney injury [Unknown]
  - Nausea [Unknown]
  - Death [Fatal]
  - Respiratory depression [Unknown]
  - Headache [Unknown]
  - Clostridium difficile infection [Unknown]
  - Dizziness [Unknown]
  - Constipation [Unknown]
  - Atrial fibrillation [Unknown]
  - Urinary retention [Unknown]
  - Bronchitis [Unknown]
  - Vomiting [Unknown]
